FAERS Safety Report 9453196 (Version 1)
Quarter: 2013Q3

REPORT INFORMATION
  Report Type: Spontaneous
  Country: US (occurrence: US)
  Receive Date: 20130812
  Receipt Date: 20130812
  Transmission Date: 20140515
  Serious: Yes (Other)
  Sender: FDA-Public Use
  Company Number: US-PFIZER INC-2013232399

PATIENT
  Sex: Female

DRUGS (1)
  1. ADVIL [Suspect]
     Indication: HEADACHE
     Dosage: UNK
     Route: 048

REACTIONS (3)
  - Incorrect dose administered [Unknown]
  - Loss of consciousness [Unknown]
  - Fall [Unknown]
